FAERS Safety Report 8979433 (Version 2)
Quarter: 2013Q1

REPORT INFORMATION
  Report Type: Spontaneous
  Country: JP (occurrence: JP)
  Receive Date: 20121221
  Receipt Date: 20130222
  Transmission Date: 20140127
  Serious: Yes (Other)
  Sender: FDA-Public Use
  Company Number: JP-NAPPMUNDI-DEU-2012-0009163

PATIENT
  Age: 66 None
  Sex: Female

DRUGS (6)
  1. BUPRENORPHINE TRANSDERMAL SYSTEM [Suspect]
     Indication: PAIN
     Dosage: 5 MCG, Q1H
     Route: 062
     Dates: start: 20120417
  2. BUPRENORPHINE TRANSDERMAL SYSTEM [Suspect]
     Dosage: 10 MCG, Q1H
     Route: 062
     Dates: start: 20120308, end: 20120416
  3. BUPRENORPHINE TRANSDERMAL SYSTEM [Suspect]
     Dosage: 5 MCG, Q1H
     Route: 062
     Dates: start: 20120214, end: 20120307
  4. DEPAKENE-R [Concomitant]
  5. RINDERON-VG [Concomitant]
     Indication: DERMATITIS
     Dosage: 5 G, DAILY
     Dates: start: 20120501
  6. POLARAMINE [Concomitant]
     Indication: DERMATITIS
     Dosage: 2 MG, DAILY
     Dates: start: 20120501

REACTIONS (8)
  - Stomatitis [Recovered/Resolved]
  - Haemorrhage subcutaneous [Not Recovered/Not Resolved]
  - Dizziness [Unknown]
  - Malaise [Not Recovered/Not Resolved]
  - Swelling face [Unknown]
  - Erythema [Not Recovered/Not Resolved]
  - Eczema [Not Recovered/Not Resolved]
  - Decreased appetite [Unknown]
